FAERS Safety Report 11625688 (Version 2)
Quarter: 2016Q4

REPORT INFORMATION
  Report Type: Spontaneous
  Country: US (occurrence: US)
  Receive Date: 20151013
  Receipt Date: 20161026
  Transmission Date: 20170206
  Serious: Yes (Other)
  Sender: FDA-Public Use
  Company Number: US-ENDO PHARMACEUTICALS INC.-2015-003197

PATIENT
  Sex: 0

DRUGS (1)
  1. VALSTAR [Suspect]
     Active Substance: VALRUBICIN
     Indication: BLADDER CANCER STAGE 0, WITH CANCER IN SITU
     Route: 043

REACTIONS (1)
  - Therapy non-responder [Not Recovered/Not Resolved]
